FAERS Safety Report 16414151 (Version 1)
Quarter: 2019Q2

REPORT INFORMATION
  Report Type: Report from Study
  Country: CA (occurrence: CA)
  Receive Date: 20190611
  Receipt Date: 20190611
  Transmission Date: 20190711
  Serious: Yes (Other)
  Sender: FDA-Public Use
  Company Number: PHHY2015CA062064

PATIENT
  Age: 52 Year
  Sex: Female
  Weight: 45.35 kg

DRUGS (4)
  1. BENADRYL [Concomitant]
     Active Substance: DIPHENHYDRAMINE HYDROCHLORIDE
     Indication: PRODUCT USED FOR UNKNOWN INDICATION
     Route: 065
  2. METHOTREXATE. [Concomitant]
     Active Substance: METHOTREXATE
     Indication: PRODUCT USED FOR UNKNOWN INDICATION
     Route: 065
  3. COSENTYX [Suspect]
     Active Substance: SECUKINUMAB
     Dosage: 150 MG, QMO
     Route: 065
     Dates: start: 2016, end: 201901
  4. COSENTYX [Suspect]
     Active Substance: SECUKINUMAB
     Indication: PSORIASIS
     Dosage: 300 MG, QMO
     Route: 058
     Dates: start: 20150511

REACTIONS (8)
  - Injection site swelling [Unknown]
  - Psoriasis [Recovered/Resolved]
  - Injection site pain [Unknown]
  - Injection site induration [Unknown]
  - Tonsillitis streptococcal [Unknown]
  - Blister [Recovered/Resolved]
  - Sinusitis [Unknown]
  - Underdose [Unknown]

NARRATIVE: CASE EVENT DATE: 20150511
